FAERS Safety Report 5357500-X (Version None)
Quarter: 2007Q2

REPORT INFORMATION
  Report Type: 
  Country: None (occurrence: None)
  Receive Date: 20070614
  Receipt Date: 20070601
  Transmission Date: 20071010
  Serious: Yes (Hospitalization)
  Sender: FDA-Public Use
  Company Number: US-ELI_LILLY_AND_COMPANY-US200705005382

PATIENT
  Age: 75 Year
  Sex: Female
  Weight: 50.793 kg

DRUGS (10)
  1. FORTEO [Suspect]
     Indication: OSTEOPOROSIS
     Dosage: 20 UG, DAILY (1/D)
     Dates: start: 20061001, end: 20070519
  2. FORTEO [Suspect]
     Dosage: 20 UG, DAILY (1/D)
     Dates: start: 20070521
  3. ANTIHYPERTENSIVES [Concomitant]
     Dosage: UNK, UNK
     Dates: start: 20070101
  4. ANTIHYPERTENSIVES AND DIURETICS IN COMBINATIO [Concomitant]
     Dates: end: 20070101
  5. TYLENOL                                 /SCH/ [Concomitant]
  6. CALCIUM CHLORIDE [Concomitant]
  7. DARVOCET [Concomitant]
  8. PLAVIX [Concomitant]
  9. NEXIUM [Concomitant]
  10. BENICAR [Concomitant]

REACTIONS (5)
  - BRONCHITIS [None]
  - DEHYDRATION [None]
  - HYPONATRAEMIA [None]
  - PLEURITIC PAIN [None]
  - VIRAL INFECTION [None]
